FAERS Safety Report 14881634 (Version 1)
Quarter: 2018Q2

REPORT INFORMATION
  Report Type: Other
  Country: US (occurrence: US)
  Receive Date: 20180511
  Receipt Date: 20180511
  Transmission Date: 20180711
  Serious: Yes (Other)
  Sender: FDA-Public Use
  Company Number: US-COSTCO WHOLESALE CORPORATION-2047621

PATIENT
  Sex: Male

DRUGS (5)
  1. STOOL SOFTENER (DOCUSATE SODIUM) [Suspect]
     Active Substance: DOCUSATE SODIUM
     Route: 048
  2. ASPIRIN 81MG [Concomitant]
     Active Substance: ASPIRIN
  3. OMEPRAZOLE. [Concomitant]
     Active Substance: OMEPRAZOLE
  4. ATENOLOL. [Concomitant]
     Active Substance: ATENOLOL
  5. FEXOFENADINE [Concomitant]
     Active Substance: FEXOFENADINE\FEXOFENADINE HYDROCHLORIDE

REACTIONS (7)
  - Sensation of foreign body [Recovered/Resolved]
  - Rash [Recovered/Resolved]
  - Sinus operation [Recovered/Resolved]
  - Cough [Recovered/Resolved]
  - Choking sensation [Recovered/Resolved]
  - Rhinorrhoea [Recovered/Resolved]
  - Throat irritation [Recovered/Resolved]
